FAERS Safety Report 19079002 (Version 2)
Quarter: 2021Q2

REPORT INFORMATION
  Report Type: Spontaneous
  Country: DE (occurrence: DE)
  Receive Date: 20210331
  Receipt Date: 20210505
  Transmission Date: 20210717
  Serious: Yes (Other)
  Sender: FDA-Public Use
  Company Number: NVSC2021DE066045

PATIENT
  Age: 56 Year
  Sex: Male

DRUGS (4)
  1. OXALIPLATIN. [Suspect]
     Active Substance: OXALIPLATIN
     Indication: HEPATOCELLULAR CARCINOMA
     Dosage: 85 MG/M2, CYCLIC (ON DAY 2)
     Route: 065
     Dates: start: 200705, end: 200709
  2. SORAFENIB [Suspect]
     Active Substance: SORAFENIB
     Indication: HEPATOCELLULAR CARCINOMA
     Dosage: 800 MG, QD
     Route: 065
     Dates: start: 200710
  3. GEMCITABINE. [Suspect]
     Active Substance: GEMCITABINE
     Indication: HEPATOCELLULAR CARCINOMA
     Dosage: 1000 MG/M2, CYCLIC (ON DAY 1)
     Route: 065
     Dates: start: 200705, end: 200709
  4. BEVACIZUMAB. [Suspect]
     Active Substance: BEVACIZUMAB
     Indication: HEPATOCELLULAR CARCINOMA
     Dosage: 10 MG/KG, CYCLIC (ON DAY 1)
     Route: 065
     Dates: start: 200705, end: 200709

REACTIONS (13)
  - Treatment failure [Unknown]
  - Renal failure [Recovered/Resolved]
  - Weight decreased [Recovered/Resolved]
  - Cough [Unknown]
  - Pancytopenia [Recovered/Resolved]
  - Mouth ulceration [Unknown]
  - Diarrhoea [Unknown]
  - Palmar-plantar erythrodysaesthesia syndrome [Unknown]
  - Erythema [Unknown]
  - Renal impairment [Unknown]
  - Product use in unapproved indication [Unknown]
  - Dysphonia [Unknown]
  - Off label use [Unknown]

NARRATIVE: CASE EVENT DATE: 2007
